FAERS Safety Report 4555739-4 (Version None)
Quarter: 2005Q1

REPORT INFORMATION
  Report Type: 
  Country: None (occurrence: None)
  Receive Date: 20050112
  Receipt Date: 20040105
  Transmission Date: 20050727
  Serious: Yes (Hospitalization)
  Sender: FDA-Public Use
  Company Number: 204024

PATIENT
  Age: 72 Year
  Sex: Female

DRUGS (9)
  1. ACTIVASE [Suspect]
     Indication: CEREBROVASCULAR ACCIDENT
     Dosage: 10.5 MG, SINGLE, INTRAVENOUS
     Route: 042
     Dates: start: 20031230, end: 20031220
  2. BENTYL [Concomitant]
  3. INDERAL [Concomitant]
  4. DOXYCYCLINE [Concomitant]
  5. NAPROSYN [Concomitant]
  6. ALTACE [Concomitant]
  7. SYNTHROID [Concomitant]
  8. AMBIEN [Concomitant]
  9. LORAZEPAM [Concomitant]

REACTIONS (4)
  - AGGRESSION [None]
  - HYPERSENSITIVITY [None]
  - INJECTION SITE ERYTHEMA [None]
  - RESTLESSNESS [None]
